FAERS Safety Report 21022812 (Version 1)
Quarter: 2022Q2

REPORT INFORMATION
  Report Type: Spontaneous
  Country: DE (occurrence: DE)
  Receive Date: 20220629
  Receipt Date: 20220629
  Transmission Date: 20220721
  Serious: Yes (Death, Hospitalization, Other)
  Sender: FDA-Public Use
  Company Number: DE-PFIZER INC-PV202200007358

PATIENT
  Age: 6 Year
  Sex: Male

DRUGS (4)
  1. METHOTREXATE SODIUM [Suspect]
     Active Substance: METHOTREXATE SODIUM
     Indication: Rosai-Dorfman syndrome
     Dosage: 20 MG/M2, WEEKLY
  2. MERCAPTOPURINE [Suspect]
     Active Substance: MERCAPTOPURINE
     Indication: Rosai-Dorfman syndrome
     Dosage: 50 MG/M2, WEEKLY
  3. VINBLASTINE [Concomitant]
     Active Substance: VINBLASTINE
     Indication: Rosai-Dorfman syndrome
     Dosage: UNK
  4. PREDNISONE [Concomitant]
     Active Substance: PREDNISONE
     Indication: Rosai-Dorfman syndrome
     Dosage: UNK

REACTIONS (1)
  - Acute biphenotypic leukaemia [Fatal]
